FAERS Safety Report 6884653-4 (Version None)
Quarter: 2010Q3

REPORT INFORMATION
  Report Type: 
  Country: None (occurrence: None)
  Receive Date: 20100729
  Receipt Date: 20070712
  Transmission Date: 20110219
  Serious: Yes (Hospitalization)
  Sender: FDA-Public Use
  Company Number: US-PFIZER INC-2007058386

PATIENT
  Sex: Male
  Weight: 113.4 kg

DRUGS (7)
  1. CELEBREX [Suspect]
     Indication: BACK PAIN
     Route: 048
     Dates: start: 20030901
  2. IBUPROFEN TABLETS [Concomitant]
  3. ACETYLSALICYLIC ACID SRT [Concomitant]
  4. DARVOCET [Concomitant]
  5. PERCOCET [Concomitant]
  6. ULTRAM [Concomitant]
  7. ROFECOXIB [Concomitant]

REACTIONS (2)
  - DEPRESSION [None]
  - MYOCARDIAL INFARCTION [None]
